FAERS Safety Report 7720420-7 (Version None)
Quarter: 2011Q3

REPORT INFORMATION
  Report Type: 
  Country: None (occurrence: None)
  Receive Date: 20110830
  Receipt Date: 20110830
  Transmission Date: 20111222
  Serious: No
  Sender: FDA-Public Use
  Company Number: None

PATIENT
  Age: 45 Year
  Sex: Male

DRUGS (3)
  1. FLUCONAZOLE [Suspect]
     Dates: start: 20090417, end: 20090505
  2. PYRIMETHAMINE TAB [Suspect]
     Dates: start: 20090417, end: 20090505
  3. SULFADIAZINE [Suspect]
     Dates: start: 20090301, end: 20090505

REACTIONS (3)
  - LIVER INJURY [None]
  - HEPATIC NECROSIS [None]
  - HEPATITIS [None]
